FAERS Safety Report 18557496 (Version 1)
Quarter: 2020Q4

REPORT INFORMATION
  Report Type: Other
  Country: CA (occurrence: CA)
  Receive Date: 20201130
  Receipt Date: 20201130
  Transmission Date: 20210114
  Serious: Yes (Hospitalization)
  Sender: FDA-Public Use
  Company Number: CA-CELLTRION INC.-2020CA032457

PATIENT

DRUGS (16)
  1. FLUDARABINE [Suspect]
     Active Substance: FLUDARABINE PHOSPHATE
     Indication: PRODUCT USED FOR UNKNOWN INDICATION
     Route: 065
  2. PREDNISONE. [Suspect]
     Active Substance: PREDNISONE
     Indication: PRODUCT USED FOR UNKNOWN INDICATION
     Dosage: 100.0 MG, 1 EVERY 3 WEEKS
     Route: 048
  3. BENADRYL [Concomitant]
     Active Substance: DIPHENHYDRAMINE HYDROCHLORIDE
  4. RITUXIMAB (UNKNOWN) [Suspect]
     Active Substance: RITUXIMAB
     Dosage: 630.0 MG, 1 EVERY 3 WEEKS
     Route: 042
  5. DOXORUBICIN [Suspect]
     Active Substance: DOXORUBICIN
     Indication: PRODUCT USED FOR UNKNOWN INDICATION
     Dosage: 50.0 MG/M2, 1 EVERY 3 WEEKS
     Route: 042
  6. RITUXIMAB (UNKNOWN) [Suspect]
     Active Substance: RITUXIMAB
     Indication: PRODUCT USED FOR UNKNOWN INDICATION
     Dosage: 645.0 MG, 1 EVERY 4 WEEKS
     Route: 041
  7. PROCHLORPERAZINE. [Concomitant]
     Active Substance: PROCHLORPERAZINE
  8. CYCLOPHOSPHAMIDE. [Suspect]
     Active Substance: CYCLOPHOSPHAMIDE
     Indication: PRODUCT USED FOR UNKNOWN INDICATION
     Dosage: 750.0 MG/M2, 1 EVERY 3 WEEKS
     Route: 042
  9. NEUPOGEN [Suspect]
     Active Substance: FILGRASTIM
     Indication: PRODUCT USED FOR UNKNOWN INDICATION
     Route: 042
  10. NEUPOGEN [Suspect]
     Active Substance: FILGRASTIM
     Indication: PRODUCT USED FOR UNKNOWN INDICATION
     Route: 042
  11. RITUXIMAB (UNKNOWN) [Suspect]
     Active Substance: RITUXIMAB
     Dosage: 375.0 MG/M2, 1 EVERY 3 WEEKS
     Route: 042
  12. NEULASTA [Suspect]
     Active Substance: PEGFILGRASTIM
     Indication: PRODUCT USED FOR UNKNOWN INDICATION
     Route: 058
  13. ERGOCALCIFEROL. [Concomitant]
     Active Substance: ERGOCALCIFEROL
  14. OMEGA-3 ACIDS [Concomitant]
     Active Substance: OMEGA-3 FATTY ACIDS
  15. RITUXIMAB (UNKNOWN) [Suspect]
     Active Substance: RITUXIMAB
     Dosage: 840.0 MG, 1 EVERY 3 WEEKS
     Route: 042
  16. VINCRISTINE [Suspect]
     Active Substance: VINCRISTINE
     Indication: PRODUCT USED FOR UNKNOWN INDICATION
     Dosage: 2.0 MG, 1 EVERY 3 WEEKS
     Route: 042

REACTIONS (22)
  - Thrombosis [Unknown]
  - Lymph node pain [Unknown]
  - Fatigue [Unknown]
  - Nausea [Unknown]
  - Blood magnesium decreased [Unknown]
  - Lymphadenitis [Unknown]
  - Arthralgia [Unknown]
  - Infection [Unknown]
  - Lymphadenopathy [Unknown]
  - Hypotension [Unknown]
  - Malaise [Unknown]
  - Platelet count decreased [Unknown]
  - Disease progression [Unknown]
  - Heart rate abnormal [Unknown]
  - Asthenia [Unknown]
  - Clostridium difficile infection [Unknown]
  - Productive cough [Unknown]
  - Muscle twitching [Unknown]
  - Febrile neutropenia [Unknown]
  - Pyrexia [Unknown]
  - Weight decreased [Unknown]
  - White blood cell count decreased [Unknown]
